FAERS Safety Report 9447380 (Version 1)
Quarter: 2013Q3

REPORT INFORMATION
  Report Type: Report from Study
  Country: US (occurrence: US)
  Receive Date: 20130808
  Receipt Date: 20130808
  Transmission Date: 20140515
  Serious: Yes (Other)
  Sender: FDA-Public Use
  Company Number: US-ROCHE-1258919

PATIENT
  Sex: Male

DRUGS (15)
  1. AVASTIN [Suspect]
     Indication: COLON CANCER
     Route: 042
  2. GRANISETRON [Concomitant]
     Route: 042
  3. DANAZOL [Concomitant]
     Route: 048
  4. AMLODIPINE [Concomitant]
  5. CALCITRIOL [Concomitant]
  6. FINASTERIDE [Concomitant]
  7. FUROSEMIDE [Concomitant]
  8. LISINOPRIL [Concomitant]
  9. LORATADINE [Concomitant]
  10. OXYCODONE [Concomitant]
  11. TRAZODONE [Concomitant]
  12. VITAMIN B6 [Concomitant]
  13. DEXAMETHASONE [Concomitant]
     Route: 042
  14. ALLOPURINOL [Concomitant]
  15. OMEPRAZOLE [Concomitant]

REACTIONS (9)
  - Thrombocytopenia [Unknown]
  - Obstructive uropathy [Unknown]
  - Neutropenia [Unknown]
  - Thyroid disorder [Unknown]
  - Nausea [Unknown]
  - Vomiting [Unknown]
  - Renal failure [Unknown]
  - Dehydration [Unknown]
  - Laboratory test abnormal [Unknown]
